FAERS Safety Report 19900686 (Version 1)
Quarter: 2021Q3

REPORT INFORMATION
  Report Type: Spontaneous
  Country: US (occurrence: US)
  Receive Date: 20210929
  Receipt Date: 20210929
  Transmission Date: 20211014
  Serious: Yes (Other)
  Sender: FDA-Public Use
  Company Number: US-PFIZER INC-202101219542

PATIENT
  Age: 55 Year
  Sex: Female

DRUGS (12)
  1. DULERA [Concomitant]
     Active Substance: FORMOTEROL FUMARATE DIHYDRATE\MOMETASONE FUROATE
     Dosage: 200?5 MCG
  2. METHOTREXATE. [Concomitant]
     Active Substance: METHOTREXATE
     Dosage: UNK
  3. ESCITALOPRAM OXALATE. [Concomitant]
     Active Substance: ESCITALOPRAM OXALATE
     Dosage: 20 MG
  4. CELECOXIB. [Concomitant]
     Active Substance: CELECOXIB
     Dosage: 200 MG
  5. VALSARTAN HCTZ [Concomitant]
     Active Substance: HYDROCHLOROTHIAZIDE\VALSARTAN
  6. XELJANZ XR [Suspect]
     Active Substance: TOFACITINIB CITRATE
     Dosage: 11 MG, DAILY
     Route: 048
     Dates: start: 202108
  7. XELJANZ XR [Suspect]
     Active Substance: TOFACITINIB CITRATE
     Indication: RHEUMATOID ARTHRITIS
     Dosage: 11 MG, DAILY
     Route: 048
     Dates: start: 201801, end: 201901
  8. ATORVASTATIN CALCIUM. [Concomitant]
     Active Substance: ATORVASTATIN CALCIUM
     Dosage: 20 MG
  9. FUROSEMIDE. [Concomitant]
     Active Substance: FUROSEMIDE
     Dosage: 40 MG
  10. POTASSIUM CHLORIDE. [Concomitant]
     Active Substance: POTASSIUM CHLORIDE
     Dosage: 20 MEQ TABLET
  11. PROAIR HFA [Concomitant]
     Active Substance: ALBUTEROL SULFATE
     Dosage: 90 UG
  12. DEXILANT [Concomitant]
     Active Substance: DEXLANSOPRAZOLE
     Dosage: 60 MG

REACTIONS (4)
  - Dyspnoea [Unknown]
  - Gastrooesophageal reflux disease [Unknown]
  - Sinusitis [Recovered/Resolved]
  - Ear infection [Recovered/Resolved]

NARRATIVE: CASE EVENT DATE: 2018
